FAERS Safety Report 16980772 (Version 1)
Quarter: 2019Q4

REPORT INFORMATION
  Report Type: Spontaneous
  Country: US (occurrence: US)
  Receive Date: 20191031
  Receipt Date: 20191031
  Transmission Date: 20200122
  Serious: Yes (Other)
  Sender: FDA-Public Use
  Company Number: US-009507513-1910USA013526

PATIENT
  Age: 23 Year
  Sex: Female

DRUGS (3)
  1. NUVARING [Suspect]
     Active Substance: ETHINYL ESTRADIOL\ETONOGESTREL
     Indication: CONTRACEPTION
     Dosage: ONE RING MONTHLY
     Route: 067
     Dates: start: 201908, end: 201910
  2. VITAMINS (UNSPECIFIED) [Concomitant]
     Active Substance: VITAMINS
  3. LEXAPRO [Concomitant]
     Active Substance: ESCITALOPRAM OXALATE

REACTIONS (3)
  - Disorientation [Not Recovered/Not Resolved]
  - Papilloedema [Not Recovered/Not Resolved]
  - Intraocular pressure increased [Not Recovered/Not Resolved]

NARRATIVE: CASE EVENT DATE: 201908
